FAERS Safety Report 10932211 (Version 4)
Quarter: 2025Q1

REPORT INFORMATION
  Report Type: Spontaneous
  Country: US (occurrence: US)
  Receive Date: 20150320
  Receipt Date: 20250314
  Transmission Date: 20250408
  Serious: No
  Sender: JOHNSON AND JOHNSON
  Company Number: US-JNJFOC-20141002245

PATIENT
  Sex: Male

DRUGS (7)
  1. RISPERDAL [Suspect]
     Active Substance: RISPERIDONE
     Indication: Product used for unknown indication
     Route: 048
     Dates: start: 2004, end: 200801
  2. RISPERIDONE [Suspect]
     Active Substance: RISPERIDONE
     Indication: Product used for unknown indication
     Route: 065
     Dates: start: 200811, end: 200901
  3. RISPERIDONE [Suspect]
     Active Substance: RISPERIDONE
  4. RISPERIDONE [Suspect]
     Active Substance: RISPERIDONE
  5. RISPERIDONE [Suspect]
     Active Substance: RISPERIDONE
  6. RISPERIDONE [Suspect]
     Active Substance: RISPERIDONE
  7. RISPERIDONE [Suspect]
     Active Substance: RISPERIDONE

REACTIONS (4)
  - Gynaecomastia [Unknown]
  - Overweight [Unknown]
  - Emotional disorder [Unknown]
  - Muscle twitching [Unknown]
